FAERS Safety Report 9659393 (Version 1)
Quarter: 2013Q4

REPORT INFORMATION
  Report Type: Spontaneous
  Country: US (occurrence: US)
  Receive Date: 20131031
  Receipt Date: 20131031
  Transmission Date: 20140711
  Serious: Yes (Other)
  Sender: FDA-Public Use
  Company Number: US-ROCHE-1295541

PATIENT
  Sex: Male

DRUGS (5)
  1. XOLAIR [Suspect]
     Indication: PRODUCT USED FOR UNKNOWN INDICATION
     Route: 065
     Dates: start: 20130908
  2. XOLAIR [Suspect]
     Route: 065
     Dates: start: 20131004
  3. ARMOUR THYROID [Concomitant]
  4. PREDNISONE [Concomitant]
  5. LASIX [Concomitant]
     Route: 065

REACTIONS (5)
  - Breast swelling [Unknown]
  - Hypophagia [Unknown]
  - Generalised oedema [Unknown]
  - Hunger [Unknown]
  - Dry mouth [Unknown]
